FAERS Safety Report 8014247-9 (Version None)
Quarter: 2011Q4

REPORT INFORMATION
  Report Type: 
  Country: None (occurrence: None)
  Receive Date: 20111229
  Receipt Date: 20111227
  Transmission Date: 20120403
  Serious: Yes (Other)
  Sender: FDA-Public Use
  Company Number: JP-VIIV HEALTHCARE LIMITED-B0682135A

PATIENT
  Sex: Male

DRUGS (8)
  1. RITONAVIR [Concomitant]
     Dosage: 200MG PER DAY
     Dates: start: 20060104
  2. NORVIR [Suspect]
     Dosage: 200MG PER DAY
     Route: 048
     Dates: start: 20081112
  3. TRUVADA [Suspect]
     Dosage: 1IUAX PER DAY
     Route: 048
     Dates: start: 20081112
  4. TRUVADA [Concomitant]
     Dosage: 2TAB PER DAY
     Route: 048
     Dates: start: 20060104
  5. TRUVADA [Suspect]
     Indication: HIV INFECTION
     Dosage: 1IUAX PER DAY
     Route: 048
     Dates: start: 20060104, end: 20070427
  6. LEXIVA [Suspect]
     Indication: HIV INFECTION
     Dosage: 1400MG PER DAY
     Route: 048
     Dates: start: 20081112
  7. ANTIHEMOPHILIC FACTOR (HUMAN) [Concomitant]
     Indication: FACTOR VIII DEFICIENCY
     Dosage: 10IU3 PER DAY
     Route: 042
     Dates: start: 20090401
  8. NORVIR [Suspect]
     Indication: HIV INFECTION
     Dosage: 100MG PER DAY
     Route: 048
     Dates: start: 20060104, end: 20070427

REACTIONS (1)
  - MUSCLE HAEMORRHAGE [None]
